FAERS Safety Report 4556738-9 (Version None)
Quarter: 2005Q1

REPORT INFORMATION
  Report Type: 
  Country: None (occurrence: None)
  Receive Date: 20050103
  Receipt Date: 20040112
  Transmission Date: 20050727
  Serious: Yes (Death, Other)
  Sender: FDA-Public Use
  Company Number: 2004002182

PATIENT
  Age: 8 Month
  Sex: Male

DRUGS (1)
  1. PENICILLIN G PROCAINE [Suspect]
     Indication: RESPIRATORY DISORDER
     Dosage: (DAILY)
     Dates: start: 19610110, end: 19610111

REACTIONS (3)
  - DRUG ADMINISTRATION ERROR [None]
  - DRUG HYPERSENSITIVITY [None]
  - OVERDOSE [None]
